FAERS Safety Report 21281001 (Version 1)
Quarter: 2022Q3

REPORT INFORMATION
  Report Type: Spontaneous
  Country: US (occurrence: US)
  Receive Date: 20220901
  Receipt Date: 20220901
  Transmission Date: 20221027
  Serious: Yes (Hospitalization)
  Sender: FDA-Public Use
  Company Number: US-PFIZER INC-PV202200055228

PATIENT
  Age: 82 Year
  Sex: Female

DRUGS (1)
  1. INLYTA [Suspect]
     Active Substance: AXITINIB
     Dosage: 5 MG

REACTIONS (5)
  - Full blood count abnormal [Unknown]
  - Renal failure [Unknown]
  - Fatigue [Unknown]
  - Arthralgia [Unknown]
  - Arthralgia [Unknown]
